FAERS Safety Report 23116521 (Version 2)
Quarter: 2024Q1

REPORT INFORMATION
  Report Type: Spontaneous
  Country: DE (occurrence: DE)
  Receive Date: 20231027
  Receipt Date: 20240104
  Transmission Date: 20240410
  Serious: Yes (Other)
  Sender: FDA-Public Use
  Company Number: DE-JNJFOC-20230952483

PATIENT
  Age: 18 Year
  Sex: Male
  Weight: 75 kg

DRUGS (4)
  1. TREMFYA [Suspect]
     Active Substance: GUSELKUMAB
     Indication: Psoriasis
     Route: 065
     Dates: start: 202306
  2. TREMFYA [Suspect]
     Active Substance: GUSELKUMAB
  3. TREMFYA [Suspect]
     Active Substance: GUSELKUMAB
  4. IXEKIZUMAB [Concomitant]
     Active Substance: IXEKIZUMAB
     Route: 065

REACTIONS (1)
  - Sleep disorder [Not Recovered/Not Resolved]
